FAERS Safety Report 4492766-X (Version None)
Quarter: 2004Q4

REPORT INFORMATION
  Report Type: 
  Country: None (occurrence: None)
  Receive Date: 20041029
  Receipt Date: 20041019
  Transmission Date: 20050328
  Serious: Yes (Hospitalization, Other)
  Sender: FDA-Public Use
  Company Number: 2004240066FI

PATIENT
  Age: 3 Day
  Sex: Female

DRUGS (2)
  1. FLAGYL [Suspect]
     Indication: SERRATIA INFECTION
  2. CEFUROXIME [Suspect]
     Indication: SERRATIA INFECTION

REACTIONS (4)
  - CHORIOAMNIONITIS [None]
  - CONJUNCTIVITIS BACTERIAL [None]
  - DRUG EXPOSURE DURING PREGNANCY [None]
  - SERRATIA INFECTION [None]
